FAERS Safety Report 19266537 (Version 1)
Quarter: 2021Q2

REPORT INFORMATION
  Report Type: Spontaneous
  Country: MY (occurrence: SG)
  Receive Date: 20210518
  Receipt Date: 20210518
  Transmission Date: 20210717
  Serious: Yes (Life-Threatening, Hospitalization)
  Sender: FDA-Public Use
  Company Number: MY-NOVOPROD-811346

PATIENT
  Age: 6 Year
  Sex: Male

DRUGS (1)
  1. NOVOMIX 30 FLEXPEN [Suspect]
     Active Substance: INSULIN ASPART
     Indication: PRODUCT USED FOR UNKNOWN INDICATION
     Dosage: 20?30 UNITS PER INJECTION ON 13 OCCASSIONS OVER 7 MONTHS
     Route: 065
     Dates: start: 201901, end: 201907

REACTIONS (7)
  - Hypoaesthesia [Unknown]
  - Blood glucose decreased [Recovered/Resolved]
  - Intentional product misuse to child [Unknown]
  - Tinnitus [Unknown]
  - Diplopia [Unknown]
  - Hypoglycaemic seizure [Recovered/Resolved]
  - Photosensitivity reaction [Unknown]

NARRATIVE: CASE EVENT DATE: 201901
